FAERS Safety Report 7513473-2 (Version None)
Quarter: 2011Q2

REPORT INFORMATION
  Report Type: 
  Country: None (occurrence: None)
  Receive Date: 20110531
  Receipt Date: 20110523
  Transmission Date: 20111010
  Serious: Yes (Other)
  Sender: FDA-Public Use
  Company Number: US-AMGEN-USASP2011017417

PATIENT
  Age: 69 Year
  Sex: Female
  Weight: 57.596 kg

DRUGS (10)
  1. PROLIA [Suspect]
     Indication: OSTEOPOROSIS
     Dosage: 60 MG, UNK
     Route: 058
     Dates: start: 20110201
  2. CELEBREX [Concomitant]
  3. SKELAXIN [Concomitant]
  4. NORVASC [Concomitant]
  5. CALCIUM CARBONATE [Concomitant]
  6. ZOLPIDEM [Concomitant]
  7. VITAMIN A [Concomitant]
  8. EVISTA [Concomitant]
  9. POTASSIUM CHLORIDE [Concomitant]
  10. TRAMADOL [Concomitant]

REACTIONS (1)
  - OSTEONECROSIS OF JAW [None]
